FAERS Safety Report 8261981 (Version 3)
Quarter: 2012Q4

REPORT INFORMATION
  Report Type: Report from Study
  Country: US (occurrence: US)
  Receive Date: 20111123
  Receipt Date: 20121025
  Transmission Date: 20130627
  Serious: Yes (Hospitalization)
  Sender: FDA-Public Use
  Company Number: US-JNJFOC-20111108678

PATIENT
  Age: 16 Year
  Sex: Female
  Weight: 58.2 kg

DRUGS (2)
  1. REMICADE [Suspect]
     Indication: COLITIS ULCERATIVE
     Route: 042
     Dates: start: 20091209
  2. PREDNISONE [Concomitant]

REACTIONS (2)
  - Colitis ulcerative [Recovered/Resolved with Sequelae]
  - Colitis ulcerative [Recovered/Resolved]
